FAERS Safety Report 6007818-2 (Version None)
Quarter: 2008Q4

REPORT INFORMATION
  Report Type: 
  Country: None (occurrence: None)
  Receive Date: 20081217
  Receipt Date: 20080630
  Transmission Date: 20090506
  Serious: No
  Sender: FDA-Public Use
  Company Number: US-ASTRAZENECA-2008UW13071

PATIENT
  Age: 69 Year
  Sex: Female
  Weight: 64.4 kg

DRUGS (3)
  1. CRESTOR [Suspect]
     Indication: BLOOD CHOLESTEROL INCREASED
     Route: 048
     Dates: start: 20080401
  2. SYNTHROID [Concomitant]
  3. FOSAMAX [Concomitant]

REACTIONS (1)
  - TINNITUS [None]
